FAERS Safety Report 4967835-8 (Version None)
Quarter: 2006Q2

REPORT INFORMATION
  Report Type: 
  Country: None (occurrence: None)
  Receive Date: 20060410
  Receipt Date: 20051017
  Transmission Date: 20061013
  Serious: Yes (Hospitalization, Disabling)
  Sender: FDA-Public Use
  Company Number: US-MERCK-0510USA07664

PATIENT
  Age: 56 Year
  Sex: Female
  Weight: 101 kg

DRUGS (14)
  1. VIOXX [Suspect]
     Indication: ARTHRITIS
     Route: 048
     Dates: start: 20010326, end: 20030701
  2. VIOXX [Suspect]
     Indication: OSTEOARTHRITIS
     Route: 048
     Dates: start: 20010326, end: 20030701
  3. ATENOLOL [Concomitant]
     Route: 048
  4. PREMARIN [Concomitant]
     Route: 065
  5. PROZAC [Concomitant]
     Route: 065
  6. ASCORBIC ACID [Concomitant]
     Route: 065
  7. VITAMIN D (UNSPECIFIED) [Concomitant]
     Route: 065
  8. GLUCOPHAGE XR [Concomitant]
     Route: 065
  9. POTASSIUM CHLORIDE [Concomitant]
     Route: 065
  10. LASIX [Concomitant]
     Route: 065
  11. LUVOX [Concomitant]
     Route: 065
     Dates: start: 20010401
  12. CIPRO [Concomitant]
     Route: 065
  13. INDAPAMIDE [Concomitant]
     Indication: BLOOD PRESSURE
     Route: 065
  14. CELEBREX [Concomitant]
     Route: 065
     Dates: start: 20021001, end: 20021101

REACTIONS (24)
  - ASTHENIA [None]
  - BACK PAIN [None]
  - BLOOD CHOLESTEROL INCREASED [None]
  - BLOOD GLUCOSE INCREASED [None]
  - BRONCHITIS ACUTE [None]
  - CEREBROVASCULAR ACCIDENT [None]
  - CORONARY ARTERY STENOSIS [None]
  - DEPRESSION [None]
  - DIZZINESS [None]
  - EAR INFECTION [None]
  - EMOTIONAL DISTRESS [None]
  - FATIGUE [None]
  - GASTROINTESTINAL DISORDER [None]
  - HEADACHE [None]
  - HYPERTENSION [None]
  - HYPOAESTHESIA [None]
  - INSOMNIA [None]
  - LITHOTRIPSY [None]
  - MIGRAINE [None]
  - PHARYNGITIS [None]
  - SINUSITIS [None]
  - SUBARACHNOID HAEMORRHAGE [None]
  - URINARY TRACT INFECTION [None]
  - VISION BLURRED [None]
